FAERS Safety Report 8333486-0 (Version None)
Quarter: 2012Q2

REPORT INFORMATION
  Report Type: 
  Country: None (occurrence: None)
  Receive Date: 20120503
  Receipt Date: 20101104
  Transmission Date: 20120825
  Serious: No
  Sender: FDA-Public Use
  Company Number: US-TEVA-2010005762

PATIENT
  Sex: Female
  Weight: 90.8 kg

DRUGS (5)
  1. SIMVASTATIN [Concomitant]
  2. LORAZEPAM [Concomitant]
  3. TYLENOL (CAPLET) [Concomitant]
  4. NUVIGIL [Suspect]
     Indication: DEPRESSION
     Dosage: 150 MILLIGRAM;
     Route: 048
     Dates: start: 20100601, end: 20101103
  5. FLUOXETINE [Concomitant]

REACTIONS (3)
  - ABDOMINAL PAIN UPPER [None]
  - INFLUENZA LIKE ILLNESS [None]
  - SOMNOLENCE [None]
